FAERS Safety Report 7539228-0 (Version None)
Quarter: 2011Q2

REPORT INFORMATION
  Report Type: 
  Country: None (occurrence: None)
  Receive Date: 20110610
  Receipt Date: 20110526
  Transmission Date: 20111010
  Serious: Yes (Hospitalization)
  Sender: FDA-Public Use
  Company Number: HU-JNJFOC-20110512918

PATIENT
  Age: 68 Year
  Sex: Female
  Weight: 75 kg

DRUGS (21)
  1. INFLIXIMAB, RECOMBINANT [Suspect]
     Route: 042
     Dates: start: 20100208
  2. CLARITHROMYCIN [Suspect]
     Indication: NASOPHARYNGITIS
     Route: 048
     Dates: start: 20110221, end: 20110227
  3. FRONTIN [Concomitant]
     Route: 048
     Dates: start: 20110125, end: 20110417
  4. FOLIC ACID [Concomitant]
     Route: 048
     Dates: start: 20100910, end: 20110414
  5. AZITHROMYCIN [Concomitant]
     Indication: NASOPHARYNGITIS
     Route: 048
     Dates: start: 20110303, end: 20110305
  6. FOLIC ACID [Concomitant]
     Indication: PROPHYLAXIS
     Route: 048
     Dates: start: 20110429
  7. FOLIC ACID [Concomitant]
     Route: 048
     Dates: start: 20110429
  8. FRONTIN [Concomitant]
     Indication: ANXIETY
     Route: 048
     Dates: start: 20110422
  9. DIAPHYLLIN [Concomitant]
     Indication: BRONCHITIS CHRONIC
     Route: 048
     Dates: start: 20040101
  10. FLOXAL [Concomitant]
     Indication: CONJUNCTIVITIS
     Route: 047
     Dates: start: 20110309
  11. TREXAN METHOTREXATE [Concomitant]
     Route: 048
     Dates: start: 20110428
  12. FRONTIN [Concomitant]
     Route: 048
     Dates: start: 20110418, end: 20110421
  13. HUMULIN R [Concomitant]
     Indication: DIABETES MELLITUS
     Dosage: 18 UNITS IN MORNING  12 UNITS AT NOON  10 UNITS IN EVENING
     Route: 058
     Dates: start: 20110125
  14. TREXAN METHOTREXATE [Concomitant]
     Indication: PSORIASIS
     Route: 048
     Dates: start: 20100909, end: 20110413
  15. FOLIC ACID [Concomitant]
     Indication: PSORIASIS
     Route: 048
     Dates: start: 20100910, end: 20110414
  16. FRONTIN [Concomitant]
     Route: 048
     Dates: start: 20110418, end: 20110421
  17. NITROMINT [Concomitant]
     Indication: MYOCARDIAL ISCHAEMIA
     Route: 048
     Dates: start: 19900101
  18. FLUKONAZOL [Concomitant]
     Indication: BODY TINEA
     Route: 048
  19. INFLIXIMAB, RECOMBINANT [Suspect]
     Indication: PSORIASIS
     Route: 042
     Dates: start: 20110509
  20. HUMULIN N [Concomitant]
     Indication: DIABETES MELLITUS
     Dosage: 14 UNITS AT 07:00  10 UNITS AT 21:00
     Route: 058
     Dates: start: 20100913
  21. OFLOXACIN [Concomitant]
     Indication: CYSTITIS
     Route: 048
     Dates: start: 20110309, end: 20110315

REACTIONS (2)
  - DRUG HYPERSENSITIVITY [None]
  - ACUTE GENERALISED EXANTHEMATOUS PUSTULOSIS [None]
